FAERS Safety Report 8637931 (Version 2)
Quarter: 2012Q4

REPORT INFORMATION
  Report Type: 
  Country: CA (occurrence: CA)
  Receive Date: 20120627
  Receipt Date: 20120914
  Transmission Date: 20130627
  Serious: Yes (Other)
  Sender: FDA-Public Use
  Company Number: CA-ELI_LILLY_AND_COMPANY-CA201206007417

PATIENT
  Age: 63 Year
  Sex: Female
  Weight: 52.61 kg

DRUGS (7)
  1. FORTEO [Suspect]
     Indication: OSTEOPOROSIS
     Dosage: 20 ug, qd
     Route: 058
     Dates: start: 20110505, end: 20120208
  2. FORTEO [Suspect]
     Dosage: 20 ug, qd
     Dates: start: 20120218
  3. NEXIUM [Concomitant]
  4. BIOCAL-D [Concomitant]
  5. PLAQUENIL [Concomitant]
     Dosage: 400 mg, UNK
  6. CELEBREX [Concomitant]
     Dosage: 200 mg, each evening
  7. ENBREL [Concomitant]
     Dosage: 50 mg, weekly (1/W)

REACTIONS (4)
  - Femur fracture [Recovered/Resolved]
  - Fall [Recovered/Resolved]
  - Impaired healing [Not Recovered/Not Resolved]
  - Drug ineffective [Unknown]
